FAERS Safety Report 5605586-7 (Version None)
Quarter: 2008Q1

REPORT INFORMATION
  Report Type: 
  Country: None (occurrence: None)
  Receive Date: 20080124
  Receipt Date: 20080115
  Transmission Date: 20080703
  Serious: Yes (Death, Hospitalization)
  Sender: FDA-Public Use
  Company Number: 008-C5013-08010021

PATIENT
  Age: 80 Year
  Weight: 97.2 kg

DRUGS (2)
  1. CC-5013 (LENALIDOMIDE) (CAPSULES) [Suspect]
     Indication: B-CELL LYMPHOMA REFRACTORY
     Dosage: 20 MG, QD, ORAL
     Route: 048
     Dates: start: 20071128, end: 20070101
  2. DEXAMETHASONE TAB [Suspect]
     Indication: B-CELL LYMPHOMA REFRACTORY

REACTIONS (6)
  - BODY TEMPERATURE INCREASED [None]
  - CONSTIPATION [None]
  - DEHYDRATION [None]
  - DISEASE PROGRESSION [None]
  - INFECTION [None]
  - SOMNOLENCE [None]
